FAERS Safety Report 16304927 (Version 2)
Quarter: 2019Q3

REPORT INFORMATION
  Report Type: Spontaneous
  Country: US (occurrence: US)
  Receive Date: 20190513
  Receipt Date: 20190805
  Transmission Date: 20191004
  Serious: Yes (Hospitalization, Other)
  Sender: FDA-Public Use
  Company Number: US-PFIZER INC-2019194085

PATIENT
  Age: 82 Year
  Sex: Male
  Weight: 77.98 kg

DRUGS (5)
  1. NEXIUM [Concomitant]
     Active Substance: ESOMEPRAZOLE MAGNESIUM
     Indication: ABDOMINAL DISCOMFORT
     Dosage: UNK
     Dates: start: 1995
  2. ZANTAC [Concomitant]
     Active Substance: RANITIDINE HYDROCHLORIDE
     Indication: ABDOMINAL DISCOMFORT
     Dosage: 150 MG, 2X/DAY
     Route: 048
     Dates: start: 1995
  3. TIKOSYN [Suspect]
     Active Substance: DOFETILIDE
     Indication: ATRIAL FIBRILLATION
     Dosage: 500 UG, 2X/DAY (12 HOURS APART)
     Route: 048
     Dates: start: 20190423
  4. PRAVASTATIN. [Concomitant]
     Active Substance: PRAVASTATIN
     Indication: BLOOD CHOLESTEROL
     Dosage: 40 MG, 1X/DAY (EVERY EVEING)
     Route: 048
  5. XARELTO [Concomitant]
     Active Substance: RIVAROXABAN
     Indication: ATRIAL FIBRILLATION
     Dosage: 20 MG, 1X/DAY (ONCE AFTER DINNER MEAL)
     Route: 048
     Dates: start: 201902

REACTIONS (8)
  - Intestinal obstruction [Recovered/Resolved]
  - Electrolyte imbalance [Unknown]
  - Eructation [Unknown]
  - Electrocardiogram QT prolonged [Unknown]
  - Gastrointestinal sounds abnormal [Unknown]
  - Intestinal obstruction [Recovered/Resolved with Sequelae]
  - Head discomfort [Unknown]
  - Flatulence [Unknown]

NARRATIVE: CASE EVENT DATE: 2019
